FAERS Safety Report 5349706-0 (Version None)
Quarter: 2007Q2

REPORT INFORMATION
  Report Type: 
  Country: None (occurrence: None)
  Receive Date: 20070607
  Receipt Date: 20070531
  Transmission Date: 20071010
  Serious: Yes (Other)
  Sender: FDA-Public Use
  Company Number: US-ASTRAZENECA-2006UW07906

PATIENT
  Sex: Male
  Weight: 111.4 kg

DRUGS (7)
  1. SEROQUEL [Suspect]
     Indication: MENTAL DISORDER
     Route: 048
     Dates: start: 19970101, end: 20060101
  2. GEODON [Concomitant]
     Dates: start: 20010101
  3. HALDOL [Concomitant]
     Dates: start: 19970101
  4. RISPERDAL [Concomitant]
     Dates: start: 20030101
  5. STELAZINE [Concomitant]
     Dates: start: 19750101, end: 19770101
  6. THORAZINE [Concomitant]
     Dates: start: 19750101
  7. PROLIXIN [Concomitant]
     Dates: start: 19770101

REACTIONS (2)
  - DIABETES MELLITUS [None]
  - TARDIVE DYSKINESIA [None]
